FAERS Safety Report 14669107 (Version 8)
Quarter: 2024Q1

REPORT INFORMATION
  Report Type: Spontaneous
  Country: US (occurrence: US)
  Receive Date: 20180322
  Receipt Date: 20240305
  Transmission Date: 20240409
  Serious: Yes (Other)
  Sender: FDA-Public Use
  Company Number: US-PFIZER INC-2018114171

PATIENT
  Age: 57 Year
  Sex: Female

DRUGS (2)
  1. XELJANZ XR [Suspect]
     Active Substance: TOFACITINIB CITRATE
     Dosage: 11 MG, 1X/DAY
     Route: 048
     Dates: end: 2022
  2. XELJANZ XR [Suspect]
     Active Substance: TOFACITINIB CITRATE
     Dosage: 11 MG, 1X/DAY
     Route: 048
     Dates: end: 2023

REACTIONS (13)
  - Rheumatoid arthritis [Unknown]
  - Skin cancer [Unknown]
  - Alopecia [Unknown]
  - Urinary tract infection [Unknown]
  - Bacterial infection [Unknown]
  - Brain fog [Unknown]
  - Confusional state [Unknown]
  - Depression [Unknown]
  - Anxiety [Unknown]
  - Inflammation [Unknown]
  - Ligament rupture [Unknown]
  - Localised infection [Unknown]
  - Therapeutic product effect incomplete [Unknown]

NARRATIVE: CASE EVENT DATE: 20220101
